FAERS Safety Report 5368229-6 (Version None)
Quarter: 2007Q2

REPORT INFORMATION
  Report Type: 
  Country: None (occurrence: None)
  Receive Date: 20070625
  Receipt Date: 20070618
  Transmission Date: 20071010
  Serious: Yes (Life-Threatening, Hospitalization, Other)
  Sender: FDA-Public Use
  Company Number: PHMT2007CA01331

PATIENT
  Age: 53 Year
  Sex: Female

DRUGS (7)
  1. SIMULECT [Suspect]
     Indication: RENAL TRANSPLANT
     Dosage: 20MG IV
     Route: 042
     Dates: start: 20070517, end: 20070517
  2. THYMOGLOBULIN [Suspect]
  3. CEFAZOLIN [Concomitant]
     Dosage: 1G  IVX1
     Route: 042
  4. PROPOFOL [Concomitant]
  5. METYLPREDNISOLON SOLUBILE [Concomitant]
     Dosage: 80MG IVX1
     Route: 042
  6. ROCURONIUM BROMIDE [Concomitant]
  7. FENTANYL [Concomitant]

REACTIONS (10)
  - COMPLICATIONS OF TRANSPLANTED KIDNEY [None]
  - HYPOTENSION [None]
  - INTUBATION [None]
  - NEPHRECTOMY [None]
  - PULMONARY OEDEMA [None]
  - PYREXIA [None]
  - RENAL CORTICAL NECROSIS [None]
  - TACHYCARDIA [None]
  - TREMOR [None]
  - WHITE BLOOD CELL COUNT INCREASED [None]
